FAERS Safety Report 12078402 (Version 1)
Quarter: 2016Q1

REPORT INFORMATION
  Report Type: Spontaneous
  Country: US (occurrence: US)
  Receive Date: 20160216
  Receipt Date: 20160216
  Transmission Date: 20160526
  Serious: Yes (Other)
  Sender: FDA-Public Use
  Company Number: US-SUN PHARMACEUTICAL INDUSTRIES LTD-2016US-111322

PATIENT
  Sex: Male
  Weight: 83.91 kg

DRUGS (1)
  1. ATORVASTATIN [Suspect]
     Active Substance: ATORVASTATIN
     Indication: BLOOD CHOLESTEROL
     Dosage: 1 DF, QD
     Route: 065

REACTIONS (5)
  - Hypersensitivity [Recovered/Resolved]
  - Respiratory disorder [Recovered/Resolved]
  - Product substitution issue [Recovered/Resolved]
  - Oesophageal pain [Recovered/Resolved]
  - Visual acuity reduced [Recovered/Resolved]
